FAERS Safety Report 24448551 (Version 2)
Quarter: 2024Q4

REPORT INFORMATION
  Report Type: Spontaneous
  Country: CA (occurrence: CA)
  Receive Date: 20241017
  Receipt Date: 20241206
  Transmission Date: 20250115
  Serious: Yes (Other)
  Sender: CELLTRION
  Company Number: CA-PFIZER INC-PV202400129419

PATIENT

DRUGS (1)
  1. INFLECTRA [Suspect]
     Active Substance: INFLIXIMAB-DYYB
     Indication: Ankylosing spondylitis
     Dosage: 400 MG, EVERY 4 WEEKS
     Route: 042
     Dates: start: 20240821

REACTIONS (7)
  - Pulmonary congestion [Unknown]
  - Pyrexia [Unknown]
  - Respiratory tract congestion [Unknown]
  - Wheezing [Unknown]
  - Rales [Unknown]
  - Productive cough [Unknown]
  - Malaise [Unknown]

NARRATIVE: CASE EVENT DATE: 20240101
